FAERS Safety Report 5906883-8 (Version None)
Quarter: 2008Q4

REPORT INFORMATION
  Report Type: 
  Country: None (occurrence: None)
  Receive Date: 20081003
  Receipt Date: 20080925
  Transmission Date: 20090506
  Serious: Yes (Life-Threatening)
  Sender: FDA-Public Use
  Company Number: SE-RANBAXY-2008RR-18353

PATIENT

DRUGS (1)
  1. SIMVASTATIN RANBAXY 10MG FILMDRAGERAD TABLETT [Suspect]

REACTIONS (2)
  - DYSPHAGIA [None]
  - PHARYNGEAL OEDEMA [None]
